FAERS Safety Report 6851168-9 (Version None)
Quarter: 2010Q3

REPORT INFORMATION
  Report Type: 
  Country: None (occurrence: None)
  Receive Date: 20100716
  Receipt Date: 20080119
  Transmission Date: 20110219
  Serious: No
  Sender: FDA-Public Use
  Company Number: US-PFIZER INC-2007091067

PATIENT
  Sex: Female
  Weight: 77.6 kg

DRUGS (1)
  1. CHANTIX [Suspect]
     Indication: SMOKING CESSATION THERAPY
     Route: 048
     Dates: start: 20070101, end: 20070101

REACTIONS (5)
  - ABNORMAL DREAMS [None]
  - CONSTIPATION [None]
  - FLUSHING [None]
  - INSOMNIA [None]
  - PALPITATIONS [None]
